FAERS Safety Report 21665552 (Version 1)
Quarter: 2022Q4

REPORT INFORMATION
  Report Type: Other
  Country: IN (occurrence: None)
  Receive Date: 20221201
  Receipt Date: 20221201
  Transmission Date: 20230113
  Serious: Yes (Death, Other)
  Sender: FDA-Public Use
  Company Number: IN-ROCHE-2664237

PATIENT
  Age: 47 Year
  Sex: Female

DRUGS (2)
  1. KADCYLA [Suspect]
     Active Substance: ADO-TRASTUZUMAB EMTANSINE
     Indication: Breast cancer metastatic
     Dosage: DOSE HAS BEEN CHANGED FROM 240 MG TO 200 MG.
     Route: 042
     Dates: start: 20191204
  2. KADCYLA [Suspect]
     Active Substance: ADO-TRASTUZUMAB EMTANSINE
     Dosage: FORMULATION: INJECTION.
     Route: 042
     Dates: start: 20201204

REACTIONS (4)
  - Pyrexia [Unknown]
  - Adverse drug reaction [Unknown]
  - Weight decreased [Unknown]
  - Death [Fatal]

NARRATIVE: CASE EVENT DATE: 20221124
